FAERS Safety Report 12118172 (Version 1)
Quarter: 2016Q1

REPORT INFORMATION
  Report Type: Spontaneous
  Country: ZA (occurrence: ZA)
  Receive Date: 20160226
  Receipt Date: 20160226
  Transmission Date: 20160526
  Serious: Yes (Other)
  Sender: FDA-Public Use
  Company Number: ZA-SUN PHARMACEUTICAL INDUSTRIES LTD-2016RR-112238

PATIENT

DRUGS (23)
  1. PYRAZINAMIDE. [Suspect]
     Active Substance: PYRAZINAMIDE
     Indication: MENINGITIS TUBERCULOUS
     Dosage: 40 MG/KG, UNK
     Route: 065
  2. OFLOXACIN. [Suspect]
     Active Substance: OFLOXACIN
     Indication: MENINGITIS TUBERCULOUS
     Dosage: 20 MG/KG, UNK
     Route: 065
     Dates: start: 201201, end: 201201
  3. OFLOXACIN. [Suspect]
     Active Substance: OFLOXACIN
     Indication: MENINGITIS TUBERCULOUS
     Dosage: 20 MG/KG, UNK
     Route: 065
  4. CLARITHROMYCIN. [Suspect]
     Active Substance: CLARITHROMYCIN
     Indication: MENINGITIS TUBERCULOUS
     Dosage: 15 MG/KG IN 2 DOSES
     Route: 065
  5. RIFAMPIN. [Suspect]
     Active Substance: RIFAMPIN
     Indication: MENINGITIS TUBERCULOUS
     Dosage: 20 MG/KG, UNK
     Route: 065
     Dates: start: 201111, end: 201112
  6. RIFAMPIN. [Suspect]
     Active Substance: RIFAMPIN
     Indication: MENINGITIS TUBERCULOUS
     Dosage: 20 MG/KG, UNK
     Route: 065
     Dates: start: 201202, end: 201206
  7. CAPREOMYCIN [Suspect]
     Active Substance: CAPREOMYCIN
     Indication: MENINGITIS TUBERCULOUS
     Dosage: 20 MG/KG, UNK
     Route: 065
  8. PREDNISOLONE. [Concomitant]
     Active Substance: PREDNISOLONE
     Indication: MENINGITIS TUBERCULOUS
     Dosage: 2 MG/KG, UNK
     Route: 065
  9. ISONIAZID. [Suspect]
     Active Substance: ISONIAZID
     Indication: MENINGITIS TUBERCULOUS
     Dosage: 20 MG/KG, UNK
     Route: 065
     Dates: start: 201111, end: 201112
  10. ETHIONAMIDE [Suspect]
     Active Substance: ETHIONAMIDE
     Indication: MENINGITIS TUBERCULOUS
     Dosage: 20 MG/KG, UNK
     Route: 065
     Dates: start: 201111, end: 201112
  11. TERIZIDONE [Suspect]
     Active Substance: TERIZIDONE
     Indication: MENINGITIS TUBERCULOUS
     Dosage: 20 MG/KG, UNK
     Route: 065
     Dates: start: 201201, end: 201206
  12. ETHAMBUTOL [Suspect]
     Active Substance: ETHAMBUTOL HYDROCHLORIDE
     Indication: MENINGITIS TUBERCULOUS
     Dosage: 20 MG/KG, UNK
     Route: 065
     Dates: start: 201201, end: 201201
  13. ETHIONAMIDE [Suspect]
     Active Substance: ETHIONAMIDE
     Indication: MENINGITIS TUBERCULOUS
     Dosage: 20 MG/KG, UNK
     Route: 065
     Dates: start: 201202, end: 201206
  14. ETHAMBUTOL [Suspect]
     Active Substance: ETHAMBUTOL HYDROCHLORIDE
     Indication: MENINGITIS TUBERCULOUS
     Dosage: 25 MG/KG, UNK
     Route: 065
  15. CLOFAZIMINE [Suspect]
     Active Substance: CLOFAZIMINE
     Indication: MENINGITIS TUBERCULOUS
     Dosage: 4 MG/KG, UNK
     Route: 065
     Dates: start: 201210
  16. PYRAZINAMIDE. [Suspect]
     Active Substance: PYRAZINAMIDE
     Indication: MENINGITIS TUBERCULOUS
     Dosage: 40 MG/KG, UNK
     Route: 065
     Dates: start: 201111, end: 201112
  17. AMIKACIN [Suspect]
     Active Substance: AMIKACIN
     Indication: MENINGITIS TUBERCULOUS
     Dosage: 20 MG/KG, UNK
     Route: 065
  18. LINEZOLID. [Suspect]
     Active Substance: LINEZOLID
     Indication: MENINGITIS TUBERCULOUS
     Dosage: 10 MG/KG, BID
     Route: 065
     Dates: start: 201210
  19. AMIKACIN [Suspect]
     Active Substance: AMIKACIN
     Indication: MENINGITIS TUBERCULOUS
     Dosage: 20 MG/KG, UNK
     Route: 065
     Dates: start: 201201, end: 201201
  20. PARAAMINOSALICYLIC ACID [Suspect]
     Active Substance: AMINOSALICYLIC ACID
     Indication: MENINGITIS TUBERCULOUS
     Dosage: 150 MG/KG, QD
     Route: 065
  21. ISONIAZID. [Suspect]
     Active Substance: ISONIAZID
     Indication: MENINGITIS TUBERCULOUS
     Dosage: 20 MG/KG, UNK
     Route: 065
     Dates: start: 201202, end: 201206
  22. LEVOFLOXACIN. [Suspect]
     Active Substance: LEVOFLOXACIN
     Indication: MENINGITIS TUBERCULOUS
     Dosage: 20 MG/KG, UNK
     Route: 065
     Dates: start: 201211
  23. ETHIONAMIDE [Suspect]
     Active Substance: ETHIONAMIDE
     Indication: MENINGITIS TUBERCULOUS
     Dosage: 20 MG/KG, UNK
     Route: 065

REACTIONS (4)
  - Drug-induced liver injury [Recovered/Resolved]
  - Hypothyroidism [Recovered/Resolved]
  - Vomiting [Recovered/Resolved]
  - Ataxia [Recovered/Resolved]
